FAERS Safety Report 11632673 (Version 3)
Quarter: 2015Q4

REPORT INFORMATION
  Report Type: Spontaneous
  Country: FR (occurrence: FR)
  Receive Date: 20151015
  Receipt Date: 20151104
  Transmission Date: 20160304
  Serious: Yes (Other)
  Sender: FDA-Public Use
  Company Number: FR-NOVOPROD-466874

PATIENT
  Age: 28 Year
  Sex: Female
  Weight: 85 kg

DRUGS (2)
  1. VITAMIN D                          /00107901/ [Concomitant]
     Active Substance: ERGOCALCIFEROL
  2. LEVEMIR [Suspect]
     Active Substance: INSULIN DETEMIR
     Indication: GESTATIONAL DIABETES
     Dosage: UNK
     Route: 058
     Dates: start: 20151002, end: 20151005

REACTIONS (4)
  - Skin mass [Recovered/Resolved]
  - Urticaria [Recovered/Resolved]
  - Exposure during pregnancy [Recovered/Resolved]
  - Swelling [Recovered/Resolved]

NARRATIVE: CASE EVENT DATE: 20151002
